FAERS Safety Report 11875511 (Version 2)
Quarter: 2016Q2

REPORT INFORMATION
  Report Type: Spontaneous
  Country: US (occurrence: US)
  Receive Date: 20151229
  Receipt Date: 20160511
  Transmission Date: 20160815
  Serious: Yes (Hospitalization, Disabling, Other)
  Sender: FDA-Public Use
  Company Number: US-009507513-1512USA012040

PATIENT
  Sex: Male
  Weight: 78.91 kg

DRUGS (1)
  1. PROPECIA [Suspect]
     Active Substance: FINASTERIDE
     Indication: ANDROGENETIC ALOPECIA
     Dosage: 1 MG, UNK
     Route: 048
     Dates: start: 20030515, end: 2005

REACTIONS (10)
  - Anxiety [Not Recovered/Not Resolved]
  - Hernia [Unknown]
  - Erectile dysfunction [Unknown]
  - Major depression [Not Recovered/Not Resolved]
  - Loss of libido [Unknown]
  - Sexual dysfunction [Not Recovered/Not Resolved]
  - Early retirement [Unknown]
  - Cognitive disorder [Not Recovered/Not Resolved]
  - Drug administration error [Unknown]
  - Joint injury [Unknown]

NARRATIVE: CASE EVENT DATE: 2003
